FAERS Safety Report 25528987 (Version 2)
Quarter: 2025Q3

REPORT INFORMATION
  Report Type: Report from Study
  Country: US (occurrence: US)
  Receive Date: 20250708
  Receipt Date: 20250805
  Transmission Date: 20251020
  Serious: No
  Sender: ROCHE
  Company Number: US-ROCHE-10000329651

PATIENT
  Age: 62 Year
  Sex: Female

DRUGS (24)
  1. OCRELIZUMAB [Suspect]
     Active Substance: OCRELIZUMAB
     Indication: Multiple sclerosis
     Route: 065
     Dates: start: 20200129
  2. OCRELIZUMAB [Suspect]
     Active Substance: OCRELIZUMAB
     Route: 065
     Dates: start: 20200212
  3. OCRELIZUMAB [Suspect]
     Active Substance: OCRELIZUMAB
     Route: 065
     Dates: start: 20200729
  4. OCRELIZUMAB [Suspect]
     Active Substance: OCRELIZUMAB
     Route: 065
     Dates: start: 20210129
  5. OCRELIZUMAB [Suspect]
     Active Substance: OCRELIZUMAB
     Route: 065
     Dates: start: 20210729
  6. OCRELIZUMAB [Suspect]
     Active Substance: OCRELIZUMAB
     Route: 065
     Dates: start: 20220201
  7. OCRELIZUMAB [Suspect]
     Active Substance: OCRELIZUMAB
     Route: 065
     Dates: start: 20220801
  8. OCRELIZUMAB [Suspect]
     Active Substance: OCRELIZUMAB
     Route: 065
     Dates: start: 20230201
  9. OCRELIZUMAB [Suspect]
     Active Substance: OCRELIZUMAB
     Route: 065
     Dates: start: 20230802
  10. OCRELIZUMAB [Suspect]
     Active Substance: OCRELIZUMAB
     Route: 065
     Dates: start: 20240207
  11. OCRELIZUMAB [Suspect]
     Active Substance: OCRELIZUMAB
     Route: 065
     Dates: start: 20241004
  12. OCRELIZUMAB [Suspect]
     Active Substance: OCRELIZUMAB
     Route: 065
     Dates: start: 20250408
  13. VENLAFAXINE [Concomitant]
     Active Substance: VENLAFAXINE HYDROCHLORIDE
     Dates: start: 20191230
  14. DIPHENHYDRAMINE HYDROCHLORIDE [Concomitant]
     Active Substance: DIPHENHYDRAMINE HYDROCHLORIDE
     Dates: start: 2018
  15. colase [Concomitant]
     Dates: start: 2018
  16. FLONASE ALLERGY RELIEF [Concomitant]
     Active Substance: FLUTICASONE PROPIONATE
     Dates: start: 20191230
  17. VITAMIN D3 [Concomitant]
     Active Substance: CHOLECALCIFEROL
     Dates: start: 2018
  18. ZYRTEC [Concomitant]
     Active Substance: CETIRIZINE HYDROCHLORIDE
     Dates: start: 20200331
  19. KETOROLAC [Concomitant]
     Active Substance: KETOROLAC TROMETHAMINE
     Dates: start: 20230802
  20. ONDANSETRON [Concomitant]
     Active Substance: ONDANSETRON
     Dates: start: 20230802
  21. ZEAXANTHIN [Concomitant]
     Active Substance: ZEAXANTHIN
     Dates: start: 20230201
  22. ZEAXANTHIN [Concomitant]
     Active Substance: ZEAXANTHIN
     Dates: start: 20230201
  23. VITAMIN C [Concomitant]
     Active Substance: ASCORBIC ACID
     Indication: Nutritional supplementation
     Dates: start: 20210120
  24. ZINC [Concomitant]
     Active Substance: ZINC
     Indication: Nutritional supplementation
     Dates: start: 20210120

REACTIONS (1)
  - Neoplasm skin [Recovered/Resolved]

NARRATIVE: CASE EVENT DATE: 20250301
